FAERS Safety Report 22931219 (Version 2)
Quarter: 2023Q4

REPORT INFORMATION
  Report Type: Spontaneous
  Country: JP (occurrence: JP)
  Receive Date: 20230911
  Receipt Date: 20231019
  Transmission Date: 20240110
  Serious: Yes (Hospitalization, Other)
  Sender: FDA-Public Use
  Company Number: JP-PFIZER INC-PV202300151216

PATIENT
  Age: 47 Year
  Sex: Male
  Weight: 52.9 kg

DRUGS (6)
  1. LORBRENA [Interacting]
     Active Substance: LORLATINIB
     Indication: Lung carcinoma cell type unspecified stage IV
     Dosage: 100 MG, 1X/DAY
     Route: 048
     Dates: start: 20230620, end: 20230727
  2. ZOLPIDEM TARTRATE [Interacting]
     Active Substance: ZOLPIDEM TARTRATE
     Dosage: UNK
     Route: 048
     Dates: start: 20230724, end: 20230724
  3. HYDROMORPHONE HYDROCHLORIDE [Concomitant]
     Active Substance: HYDROMORPHONE HYDROCHLORIDE
     Dosage: UNK
     Route: 048
  4. CALONAL [Concomitant]
     Active Substance: ACETAMINOPHEN
     Dosage: UNK
  5. LANSOPRAZOLE [Concomitant]
     Active Substance: LANSOPRAZOLE
     Dosage: UNK
  6. FENOFIBRATE TAKEDA TEVA [Concomitant]
     Dosage: UNK

REACTIONS (13)
  - Pneumonia [Unknown]
  - Drug interaction [Unknown]
  - Cognitive disorder [Recovered/Resolved]
  - Amnesia [Recovered/Resolved]
  - Neoplasm progression [Unknown]
  - Disorientation [Unknown]
  - Mental disorder [Recovering/Resolving]
  - Mood swings [Recovering/Resolving]
  - Affect lability [Unknown]
  - Anxiety [Unknown]
  - Blood triglycerides increased [Recovering/Resolving]
  - Low density lipoprotein increased [Recovering/Resolving]
  - Blood lactate dehydrogenase increased [Recovering/Resolving]

NARRATIVE: CASE EVENT DATE: 20230101
